FAERS Safety Report 16643960 (Version 1)
Quarter: 2019Q3

REPORT INFORMATION
  Report Type: Spontaneous
  Country: US (occurrence: US)
  Receive Date: 20190729
  Receipt Date: 20190729
  Transmission Date: 20191004
  Serious: No
  Sender: FDA-Public Use
  Company Number: US-JNJFOC-20190728168

PATIENT
  Sex: Male

DRUGS (1)
  1. RISPERDAL [Suspect]
     Active Substance: RISPERIDONE
     Indication: PRODUCT USED FOR UNKNOWN INDICATION
     Route: 065

REACTIONS (10)
  - Dizziness [Unknown]
  - Nasal congestion [Unknown]
  - Penis disorder [Unknown]
  - Neck pain [Unknown]
  - Vision blurred [Unknown]
  - Erectile dysfunction [Unknown]
  - Back pain [Unknown]
  - Vertigo [Unknown]
  - Breast enlargement [Unknown]
  - Headache [Unknown]
